FAERS Safety Report 4339957-6 (Version None)
Quarter: 2004Q2

REPORT INFORMATION
  Report Type: 
  Country: None (occurrence: None)
  Receive Date: 20040412
  Receipt Date: 20040330
  Transmission Date: 20050107
  Serious: Yes (Death)
  Sender: FDA-Public Use
  Company Number: JP-JNJFOC-20040200932

PATIENT
  Age: 30 Year
  Sex: Male
  Weight: 48.5 kg

DRUGS (1)
  1. REMICADE [Suspect]
     Indication: CROHN'S DISEASE
     Dosage: INTRAVENOUS DRIP
     Route: 041
     Dates: start: 20021030, end: 20021030

REACTIONS (13)
  - ABDOMINAL ABSCESS [None]
  - BRAIN STEM HAEMORRHAGE [None]
  - BRAIN STEM INFARCTION [None]
  - BULBAR PALSY [None]
  - CARDIO-RESPIRATORY ARREST [None]
  - COMA [None]
  - DISSEMINATED INTRAVASCULAR COAGULATION [None]
  - ENCEPHALOPATHY [None]
  - INFARCTION [None]
  - POSTOPERATIVE INFECTION [None]
  - RESPIRATORY DISORDER [None]
  - SEPSIS [None]
  - SHOCK [None]
